FAERS Safety Report 7051955-0 (Version None)
Quarter: 2010Q4

REPORT INFORMATION
  Report Type: 
  Country: None (occurrence: None)
  Receive Date: 20101019
  Receipt Date: 20101013
  Transmission Date: 20110411
  Serious: Yes (Death, Other)
  Sender: FDA-Public Use
  Company Number: JP-BAYER-200913002BYL

PATIENT
  Age: 79 Year
  Sex: Female

DRUGS (11)
  1. NEXAVAR [Suspect]
     Indication: HEPATIC NEOPLASM MALIGNANT
     Dosage: TOTAL DAILY DOSE: 400 MG  UNIT DOSE: 200 MG
     Route: 048
     Dates: start: 20090813, end: 20090817
  2. MAGLAX [Concomitant]
     Route: 048
     Dates: end: 20090824
  3. MUCOSTA [Concomitant]
     Route: 048
     Dates: end: 20090824
  4. TAKEPRON [Concomitant]
     Route: 048
     Dates: end: 20090824
  5. LASIX [Concomitant]
     Route: 048
     Dates: end: 20090824
  6. ALDACTONE [Concomitant]
     Route: 048
     Dates: end: 20090824
  7. LIVACT [Concomitant]
     Route: 048
     Dates: end: 20090824
  8. CONFATANIN [Concomitant]
     Indication: CANCER PAIN
     Route: 048
     Dates: end: 20090824
  9. MAALOX [Concomitant]
     Route: 048
     Dates: end: 20090824
  10. URSO 250 [Concomitant]
     Route: 048
     Dates: end: 20090824
  11. FLUITRAN [Concomitant]
     Route: 048
     Dates: start: 20090731, end: 20090815

REACTIONS (6)
  - ALBUMIN GLOBULIN RATIO DECREASED [None]
  - ASCITES [None]
  - HEPATIC ENCEPHALOPATHY [None]
  - HEPATIC NEOPLASM MALIGNANT [None]
  - HYPERAMMONAEMIA [None]
  - LIPASE INCREASED [None]
